FAERS Safety Report 19939092 (Version 1)
Quarter: 2021Q4

REPORT INFORMATION
  Report Type: Spontaneous
  Country: FR (occurrence: FR)
  Receive Date: 20211011
  Receipt Date: 20211011
  Transmission Date: 20220303
  Serious: Yes (Hospitalization)
  Sender: FDA-Public Use
  Company Number: None

PATIENT
  Age: 79 Year
  Sex: Male
  Weight: 95 kg

DRUGS (18)
  1. ATORVASTATIN [Interacting]
     Active Substance: ATORVASTATIN
     Indication: Dyslipidaemia
     Dosage: 10 MG FILM-COATED TABLETS
     Route: 048
     Dates: start: 20210914, end: 20210916
  2. DAPTOMYCIN [Interacting]
     Active Substance: DAPTOMYCIN
     Indication: Corynebacterium infection
     Dosage: 500 MG POWDER FOR SOLUTION FOR INJECTION /?INFUSION
     Route: 042
     Dates: start: 20210901, end: 20210916
  3. Lovonox [Concomitant]
  4. AMIODARONE [Concomitant]
     Active Substance: AMIODARONE
  5. GLIVEC [Concomitant]
     Active Substance: IMATINIB MESYLATE
     Dosage: 100 MG FILM-COATED TABLETS
  6. FUROSEMIDE [Concomitant]
     Active Substance: FUROSEMIDE
  7. OXYCODONE [Concomitant]
     Active Substance: OXYCODONE
  8. ACETAMINOPHEN [Concomitant]
     Active Substance: ACETAMINOPHEN
  9. TOUJEO [Concomitant]
     Active Substance: INSULIN GLARGINE
  10. SYMBICORT [Concomitant]
     Active Substance: BUDESONIDE\FORMOTEROL FUMARATE DIHYDRATE
  11. LORAZEPAM [Concomitant]
     Active Substance: LORAZEPAM
  12. PAROXETINE [Concomitant]
     Active Substance: PAROXETINE
  13. Transipeg [Concomitant]
  14. LANSOPRAZOLE [Concomitant]
     Active Substance: LANSOPRAZOLE
  15. LEVOTHYROXINE [Concomitant]
     Active Substance: LEVOTHYROXINE
  16. CANDESARTAN CILEXETIL [Concomitant]
     Active Substance: CANDESARTAN CILEXETIL
  17. Pivalone [Concomitant]
  18. FERROUS SULFATE [Concomitant]
     Active Substance: FERROUS SULFATE

REACTIONS (2)
  - Rhabdomyolysis [Recovering/Resolving]
  - Drug interaction [Unknown]

NARRATIVE: CASE EVENT DATE: 20210916
